FAERS Safety Report 5142872-1 (Version None)
Quarter: 2006Q4

REPORT INFORMATION
  Report Type: 
  Country: None (occurrence: None)
  Receive Date: 20061030
  Receipt Date: 20061025
  Transmission Date: 20070319
  Serious: Yes (Death)
  Sender: FDA-Public Use
  Company Number: 231731

PATIENT
  Age: 83 Year
  Sex: Male

DRUGS (2)
  1. ACTIVACIN(ALTEPLASE) PWDR + SOLVENT, INFUSION SOLN [Suspect]
     Indication: CEREBRAL ARTERY EMBOLISM
     Dosage: 33.6 MG, SINGLE, INTRAVENOUS
     Route: 042
     Dates: start: 20060922, end: 20060922
  2. RADICUT (EDARAVONE) [Concomitant]

REACTIONS (1)
  - MYOCARDIAL INFARCTION [None]
